FAERS Safety Report 5251137-9 (Version None)
Quarter: 2007Q1

REPORT INFORMATION
  Report Type: 
  Country: None (occurrence: None)
  Receive Date: 20070228
  Receipt Date: 20060913
  Transmission Date: 20070707
  Serious: No
  Sender: FDA-Public Use
  Company Number: US-GLAXOSMITHKLINE-A0618793A

PATIENT
  Age: 21 Year
  Sex: Female
  Weight: 65.9 kg

DRUGS (3)
  1. LAMICTAL [Suspect]
     Dosage: 50MG PER DAY
     Route: 048
     Dates: start: 20060817, end: 20060829
  2. DILANTIN [Concomitant]
     Dosage: 300MG PER DAY
     Route: 048
     Dates: start: 20060812
  3. TRANXENE [Concomitant]
     Dosage: 3.75U THREE TIMES PER DAY
     Dates: start: 20060831

REACTIONS (6)
  - HEADACHE [None]
  - JOINT RANGE OF MOTION DECREASED [None]
  - LOCAL SWELLING [None]
  - LYMPH NODE PAIN [None]
  - LYMPHADENOPATHY [None]
  - PYREXIA [None]
